FAERS Safety Report 15976828 (Version 1)
Quarter: 2019Q1

REPORT INFORMATION
  Report Type: Spontaneous
  Country: NO (occurrence: NO)
  Receive Date: 20190218
  Receipt Date: 20190218
  Transmission Date: 20190418
  Serious: Yes (Hospitalization)
  Sender: FDA-Public Use
  Company Number: NO-TEVA-2019-NO-1012607

PATIENT
  Age: 68 Year
  Sex: Female

DRUGS (2)
  1. ELIQUIS [Suspect]
     Active Substance: APIXABAN
     Indication: ATRIAL FIBRILLATION
     Route: 048
     Dates: start: 20190124, end: 20190127
  2. PREDNISOLON [Suspect]
     Active Substance: PREDNISOLONE
     Route: 048

REACTIONS (1)
  - Intra-abdominal haematoma [Recovering/Resolving]

NARRATIVE: CASE EVENT DATE: 20190127
